FAERS Safety Report 8846087 (Version 1)
Quarter: 2012Q4

REPORT INFORMATION
  Report Type: Report from Study
  Country: US (occurrence: US)
  Receive Date: 20121017
  Receipt Date: 20121017
  Transmission Date: 20130627
  Serious: Yes (Hospitalization, Other)
  Sender: FDA-Public Use
  Company Number: US-US-EMD SERONO, INC.-7167477

PATIENT
  Sex: Female

DRUGS (1)
  1. REBIF [Suspect]
     Indication: MULTIPLE SCLEROSIS
     Route: 058
     Dates: start: 20090918

REACTIONS (4)
  - Pyrexia [Unknown]
  - Urinary retention [Unknown]
  - Urinary incontinence [Unknown]
  - Multiple sclerosis relapse [Recovering/Resolving]
